FAERS Safety Report 7326900-0 (Version None)
Quarter: 2011Q1

REPORT INFORMATION
  Report Type: 
  Country: None (occurrence: None)
  Receive Date: 20110302
  Receipt Date: 20110223
  Transmission Date: 20110831
  Serious: Yes (Other)
  Sender: FDA-Public Use
  Company Number: US-PFIZER INC-2011009036

PATIENT
  Sex: Female
  Weight: 66.667 kg

DRUGS (10)
  1. DILTIAZEM [Concomitant]
     Dosage: UNK
  2. FUROSEMIDE [Concomitant]
     Dosage: UNK
  3. AVELOX [Concomitant]
     Dosage: UNK
  4. CLONAZEPAM [Concomitant]
     Dosage: UNK
  5. NICOTROL [Suspect]
     Dosage: UNK
     Dates: start: 20100801
  6. NICOTROL [Suspect]
     Indication: SMOKING CESSATION THERAPY
     Dosage: 4 MG, UNK
     Route: 055
     Dates: start: 20101201
  7. WARFARIN [Concomitant]
     Indication: ANTICOAGULANT THERAPY
     Dosage: 2 MG, UNK
  8. DIGOXIN [Concomitant]
     Dosage: UNK
  9. NICOTINE [Suspect]
     Indication: SMOKING CESSATION THERAPY
     Dosage: UNK MG, UNK
  10. KLOR-CON [Concomitant]
     Dosage: UNK

REACTIONS (4)
  - FLUID RETENTION [None]
  - DEVICE FAILURE [None]
  - MALAISE [None]
  - TOOTH LOSS [None]
